FAERS Safety Report 5797538-1 (Version None)
Quarter: 2008Q2

REPORT INFORMATION
  Report Type: 
  Country: None (occurrence: None)
  Receive Date: 20080618
  Receipt Date: 20071119
  Transmission Date: 20081010
  Serious: Yes (Other)
  Sender: FDA-Public Use
  Company Number: 200717023US

PATIENT
  Age: 77 Year
  Sex: Male
  Weight: 90.9 kg

DRUGS (7)
  1. LANTUS [Suspect]
     Indication: TYPE 2 DIABETES MELLITUS
     Dosage: 18 U QD
     Dates: start: 20040101
  2. NOVOLOG [Concomitant]
  3. METOPROLOL SUCCINATE (TOPROL) [Concomitant]
  4. SIMVASTATIN (SIMVASTIN) [Concomitant]
  5. LOSARTAN NIACIN [Concomitant]
  6. ASPIRIN [Concomitant]
  7. ERGOCALCIFEROL, RETINOL, CALCIUM CARBONATE (CALCITROL) [Concomitant]

REACTIONS (2)
  - BLOOD GLUCOSE DECREASED [None]
  - BLOOD GLUCOSE INCREASED [None]
